FAERS Safety Report 11685510 (Version 5)
Quarter: 2016Q2

REPORT INFORMATION
  Report Type: Report from Study
  Country: JP (occurrence: JP)
  Receive Date: 20151030
  Receipt Date: 20160531
  Transmission Date: 20160815
  Serious: Yes (Hospitalization)
  Sender: FDA-Public Use
  Company Number: PHJP2015JP019010

PATIENT
  Age: 52 Year
  Sex: Male

DRUGS (29)
  1. CERTICAN [Suspect]
     Active Substance: EVEROLIMUS
     Dosage: 0.75 MG, QD
     Route: 048
     Dates: start: 20130709, end: 20130711
  2. CERTICAN [Suspect]
     Active Substance: EVEROLIMUS
     Dosage: 0.5 MG, QD
     Route: 048
     Dates: start: 20130712, end: 20141212
  3. PREDONINE [Suspect]
     Active Substance: PREDNISOLONE\PREDNISOLONE ACETATE\PREDNISOLONE SODIUM SUCCINATE
     Dosage: 5 MG, UNK
     Route: 048
     Dates: start: 20141205
  4. PROGRAF [Concomitant]
     Active Substance: TACROLIMUS\TACROLIMUS ANHYDROUS
     Indication: HEART TRANSPLANT
     Dosage: 1.8 MG, UNK
     Route: 048
     Dates: start: 20140410, end: 20140612
  5. TACROLIMUS. [Concomitant]
     Active Substance: TACROLIMUS
     Dosage: 1.3 MG, UNK
     Route: 048
  6. TACROLIMUS. [Concomitant]
     Active Substance: TACROLIMUS
     Indication: IMMUNOSUPPRESSANT DRUG THERAPY
     Dosage: 3 MG, UNK
     Route: 048
  7. PREDONINE [Suspect]
     Active Substance: PREDNISOLONE\PREDNISOLONE ACETATE\PREDNISOLONE SODIUM SUCCINATE
     Dosage: 2.5 MG, UNK
     Route: 048
     Dates: start: 20141031, end: 20141204
  8. RENIVACE [Concomitant]
     Active Substance: ENALAPRIL
     Dosage: 2.5 MG, UNK
     Route: 048
  9. PROGRAF [Concomitant]
     Active Substance: TACROLIMUS\TACROLIMUS ANHYDROUS
     Dosage: 4.7 MG, UNK
     Route: 048
     Dates: start: 20150509
  10. TACROLIMUS. [Concomitant]
     Active Substance: TACROLIMUS
     Dosage: 2.2 MG, UNK
     Route: 048
  11. TACROLIMUS. [Concomitant]
     Active Substance: TACROLIMUS
     Dosage: 2 MG, UNK
     Route: 048
  12. LASIX [Concomitant]
     Active Substance: FUROSEMIDE
     Indication: PRODUCT USED FOR UNKNOWN INDICATION
     Dosage: 20 MG, UNK
     Route: 048
  13. CERTICAN [Suspect]
     Active Substance: EVEROLIMUS
     Indication: HEART TRANSPLANT
     Dosage: 1.5 MG, UNK
     Route: 048
     Dates: start: 20130524, end: 20130603
  14. CERTICAN [Suspect]
     Active Substance: EVEROLIMUS
     Dosage: 1.25 MG, QD
     Route: 048
     Dates: start: 20130604, end: 20130620
  15. NORVASC [Concomitant]
     Active Substance: AMLODIPINE BESYLATE
     Indication: HYPERTENSION
     Dosage: 2.5 MG, UNK
     Route: 048
     Dates: start: 20120416
  16. LIPITOR [Concomitant]
     Active Substance: ATORVASTATIN CALCIUM
     Indication: HYPERLIPIDAEMIA
     Dosage: 5 MG, UNK
     Route: 048
  17. RENIVACE [Concomitant]
     Active Substance: ENALAPRIL
     Indication: HYPERLIPIDAEMIA
     Dosage: 5 MG, UNK
     Route: 048
  18. FLUITRAN [Concomitant]
     Active Substance: TRICHLORMETHIAZIDE
     Indication: PRODUCT USED FOR UNKNOWN INDICATION
     Dosage: 1 MG, UNK
     Route: 048
     Dates: start: 20100821
  19. FLUITRAN [Concomitant]
     Active Substance: TRICHLORMETHIAZIDE
     Dosage: 2 MG, UNK
     Route: 065
  20. PROGRAF [Concomitant]
     Active Substance: TACROLIMUS\TACROLIMUS ANHYDROUS
     Dosage: 2.2 MG, UNK
     Route: 048
     Dates: start: 20150306, end: 20150508
  21. BAYASPIRIN [Concomitant]
     Active Substance: ASPIRIN
     Indication: HYPERLIPIDAEMIA
     Dosage: 100 MG, UNK
     Route: 048
     Dates: start: 20120509
  22. TACROLIMUS. [Concomitant]
     Active Substance: TACROLIMUS
     Dosage: 1.8 MG, UNK
     Route: 048
  23. CERTICAN [Suspect]
     Active Substance: EVEROLIMUS
     Dosage: 1 MG, QD
     Route: 048
     Dates: start: 20130621, end: 20130708
  24. PREDONINE [Suspect]
     Active Substance: PREDNISOLONE\PREDNISOLONE ACETATE\PREDNISOLONE SODIUM SUCCINATE
     Indication: HEART TRANSPLANT
     Dosage: 5 MG, UNK
     Route: 048
     Dates: start: 20130408, end: 20141030
  25. TACROLIMUS. [Concomitant]
     Active Substance: TACROLIMUS
     Indication: HEART TRANSPLANT
     Dosage: 3.2 MG, UNK
     Route: 048
     Dates: start: 20130307
  26. CERTICAN [Suspect]
     Active Substance: EVEROLIMUS
     Dosage: 0.75 MG, QD
     Route: 048
     Dates: start: 20141213, end: 20150413
  27. PROGRAF [Concomitant]
     Active Substance: TACROLIMUS\TACROLIMUS ANHYDROUS
     Dosage: 2 MG, UNK
     Route: 048
     Dates: start: 20140613, end: 20150305
  28. SLOW K [Concomitant]
     Active Substance: POTASSIUM CHLORIDE
     Indication: HYPERLIPIDAEMIA
     Dosage: 600 MG, UNK
     Route: 048
     Dates: start: 20120513
  29. TACROLIMUS. [Concomitant]
     Active Substance: TACROLIMUS
     Dosage: 2.4 MG, UNK
     Route: 048

REACTIONS (5)
  - Pericarditis constrictive [Unknown]
  - Right ventricular failure [Not Recovered/Not Resolved]
  - Pericardial effusion [Not Recovered/Not Resolved]
  - Cardiac output decreased [Unknown]
  - Right atrial pressure increased [Unknown]

NARRATIVE: CASE EVENT DATE: 20141201
